FAERS Safety Report 8092179 (Version 3)
Quarter: 2013Q1

REPORT INFORMATION
  Report Type: Report from Study
  Country: US (occurrence: US)
  Receive Date: 20110816
  Receipt Date: 20130118
  Transmission Date: 20140127
  Serious: Yes (Hospitalization)
  Sender: FDA-Public Use
  Company Number: US-JNJFOC-20110804046

PATIENT
  Age: 16 Year
  Sex: Male
  Weight: 47.1 kg

DRUGS (4)
  1. REMICADE [Suspect]
     Indication: INFLAMMATORY BOWEL DISEASE
     Route: 042
     Dates: start: 20100927
  2. ANTIBIOTICS [Concomitant]
     Indication: INFLAMMATORY BOWEL DISEASE
  3. 5-ASA [Concomitant]
     Route: 048
  4. HYDROCORTISONE [Concomitant]

REACTIONS (2)
  - Weight decreased [Recovered/Resolved]
  - Crohn^s disease [Recovered/Resolved]
